FAERS Safety Report 11107064 (Version 1)
Quarter: 2015Q2

REPORT INFORMATION
  Report Type: Spontaneous
  Country: US (occurrence: US)
  Receive Date: 20150512
  Receipt Date: 20150512
  Transmission Date: 20150821
  Serious: No
  Sender: FDA-Public Use
  Company Number: US-BAUSCH-BL-2014-002610

PATIENT
  Age: 73 Year
  Sex: Female

DRUGS (8)
  1. LATANOPROST OPHTHALMIC SOLUTION 0.005% [Suspect]
     Active Substance: LATANOPROST
     Indication: EYE OPERATION
     Dosage: 1 DROP ONCE DAILY IN THE RIGHT EYE
     Route: 047
     Dates: start: 200812
  2. COMBIGAN [Concomitant]
     Active Substance: BRIMONIDINE TARTRATE\TIMOLOL MALEATE
     Indication: PRODUCT USED FOR UNKNOWN INDICATION
  3. BRIMONIDINE [Concomitant]
     Active Substance: BRIMONIDINE\BRIMONIDINE TARTRATE
     Indication: CORNEAL TRANSPLANT
  4. TIMOLOL [Concomitant]
     Active Substance: TIMOLOL
     Indication: GLAUCOMA
     Route: 061
  5. TIMOLOL [Concomitant]
     Active Substance: TIMOLOL
     Indication: CORNEAL TRANSPLANT
  6. BRIMONIDINE [Concomitant]
     Active Substance: BRIMONIDINE\BRIMONIDINE TARTRATE
     Indication: GLAUCOMA
     Route: 061
  7. LOTEMAX [Concomitant]
     Active Substance: LOTEPREDNOL ETABONATE
     Indication: GLAUCOMA
     Route: 061
  8. LOTEMAX [Concomitant]
     Active Substance: LOTEPREDNOL ETABONATE
     Indication: CORNEAL TRANSPLANT

REACTIONS (3)
  - Ocular hyperaemia [Recovered/Resolved]
  - Dark circles under eyes [Recovered/Resolved]
  - Foreign body sensation in eyes [Recovered/Resolved]

NARRATIVE: CASE EVENT DATE: 201405
